FAERS Safety Report 23677766 (Version 1)
Quarter: 2024Q1

REPORT INFORMATION
  Report Type: Spontaneous
  Country: US (occurrence: None)
  Receive Date: 20240326
  Receipt Date: 20240326
  Transmission Date: 20240410
  Serious: Yes (Hospitalization)
  Sender: FDA-Public Use
  Company Number: None

PATIENT
  Age: 35 Year
  Sex: Male
  Weight: 103.5 kg

DRUGS (6)
  1. OZEMPIC [Suspect]
     Active Substance: SEMAGLUTIDE
     Indication: Type 2 diabetes mellitus
     Dosage: 1 INJECTION WEEKLY INJECTION INTO ABDOMINAL FAT ?
     Route: 050
     Dates: start: 20231230, end: 20240303
  2. LISINOPRIL [Concomitant]
     Active Substance: LISINOPRIL
  3. ATORVASTATIN [Concomitant]
     Active Substance: ATORVASTATIN
  4. Freestyle Libre3 [Concomitant]
  5. glucose monitor [Concomitant]
  6. VITAMIN D [Concomitant]
     Active Substance: VITAMIN D NOS

REACTIONS (10)
  - Palpitations [None]
  - Panic attack [None]
  - Suicidal ideation [None]
  - Sleep disorder [None]
  - Fear [None]
  - Crying [None]
  - Thinking abnormal [None]
  - Anxiety [None]
  - Vomiting [None]
  - Loss of personal independence in daily activities [None]

NARRATIVE: CASE EVENT DATE: 20240228
